FAERS Safety Report 10661067 (Version 1)
Quarter: 2014Q4

REPORT INFORMATION
  Report Type: Spontaneous
  Country: US (occurrence: US)
  Receive Date: 20141218
  Receipt Date: 20141218
  Transmission Date: 20150529
  Serious: No
  Sender: FDA-Public Use
  Company Number: US-009507513-1412USA006412

PATIENT
  Age: 31 Year
  Sex: Female

DRUGS (5)
  1. LOPINAVIR (+) RITONAVIR [Suspect]
     Active Substance: LOPINAVIR\RITONAVIR
     Dosage: COURSE NUMBER:1, TOTAL DAILY DOSE: 4
     Route: 048
  2. ZIDOVUDINE. [Suspect]
     Active Substance: ZIDOVUDINE
     Dosage: COURSE NUMBER: 2, TOTAL DAILY DOSE: 1
     Route: 042
  3. LAMIVUDINE AND ZIDOVUDINE [Suspect]
     Active Substance: LAMIVUDINE\ZIDOVUDINE
     Dosage: COURSE NUMBER:1, TOTAL DAILY DOSE: 2
     Route: 048
  4. ZIDOVUDINE. [Suspect]
     Active Substance: ZIDOVUDINE
     Dosage: COURSE NUMBER:1, TOTAL DAILY DOSE:2
     Route: 042
  5. RALTEGRAVIR POTASSIUM [Suspect]
     Active Substance: RALTEGRAVIR POTASSIUM
     Dosage: COURSE NUMBER:1, TOTAL DAILY DOSE: 800
     Route: 048

REACTIONS (1)
  - Exposure during pregnancy [Recovered/Resolved]
